FAERS Safety Report 11940610 (Version 5)
Quarter: 2016Q1

REPORT INFORMATION
  Report Type: Spontaneous
  Country: TR (occurrence: TR)
  Receive Date: 20160122
  Receipt Date: 20160217
  Transmission Date: 20160526
  Serious: Yes (Hospitalization, Disabling)
  Sender: FDA-Public Use
  Company Number: PHHY2016TR007270

PATIENT
  Age: 42 Year
  Sex: Male

DRUGS (4)
  1. SOMAVERT [Concomitant]
     Active Substance: PEGVISOMANT
     Indication: ACROMEGALY
     Dosage: UNK UNK, QD
     Route: 065
  2. DOSTINEX [Concomitant]
     Active Substance: CABERGOLINE
     Indication: ACROMEGALY
     Dosage: UNK UNK, BIW (TWICEE WEEKLY)
     Route: 065
  3. SANDOSTATIN LAR DEPOT [Suspect]
     Active Substance: OCTREOTIDE ACETATE
     Indication: ACROMEGALY
     Dosage: 30 MG, QMO (EVERY 28 DAYS)
     Route: 065
  4. DELTACORTRIL [Concomitant]
     Active Substance: PREDNISOLONE
     Indication: ACROMEGALY
     Dosage: 0.5 DF, QD (HALF DAILY)
     Route: 065

REACTIONS (5)
  - Coma [Unknown]
  - Insulin-like growth factor increased [Not Recovered/Not Resolved]
  - Renal failure [Recovered/Resolved with Sequelae]
  - Disseminated intravascular coagulation [Recovered/Resolved with Sequelae]
  - Blood potassium increased [Recovered/Resolved with Sequelae]
